FAERS Safety Report 7777543-6 (Version None)
Quarter: 2011Q3

REPORT INFORMATION
  Report Type: 
  Country: None (occurrence: None)
  Receive Date: 20110922
  Receipt Date: 20110906
  Transmission Date: 20111222
  Serious: Yes (Other)
  Sender: FDA-Public Use
  Company Number: FK201101953

PATIENT
  Age: 29 Year
  Sex: Female

DRUGS (4)
  1. LEUCOVORIN CALCIUM [Suspect]
     Indication: RECTAL CANCER STAGE IV
  2. OXALIPLATIN [Suspect]
     Indication: RECTAL CANCER STAGE IV
     Dosage: 100 MG/BODY
  3. FLUOROURACIL [Suspect]
     Indication: RECTAL CANCER STAGE IV
  4. IRINOTECAN HCL [Suspect]
     Indication: RECTAL CANCER STAGE IV

REACTIONS (2)
  - INTERSTITIAL LUNG DISEASE [None]
  - NEUROPATHY PERIPHERAL [None]
